FAERS Safety Report 19207750 (Version 1)
Quarter: 2021Q2

REPORT INFORMATION
  Report Type: Spontaneous
  Country: US (occurrence: US)
  Receive Date: 20210503
  Receipt Date: 20210503
  Transmission Date: 20210717
  Serious: Yes (Other)
  Sender: FDA-Public Use
  Company Number: US-JNJFOC-20210445055

PATIENT
  Age: 65 Year
  Sex: Female
  Weight: 59.93 kg

DRUGS (8)
  1. SPRAVATO [Suspect]
     Active Substance: ESKETAMINE
     Dosage: 56 MG, 4 TOTAL DOSES
     Dates: start: 20210219, end: 20210303
  2. SPRAVATO [Suspect]
     Active Substance: ESKETAMINE
     Dosage: 28 MG, 3 TOTAL DOSES
     Dates: start: 20210305, end: 20210312
  3. METOCLOPRAMIDE. [Concomitant]
     Active Substance: METOCLOPRAMIDE
  4. TRAZODONE [Concomitant]
     Active Substance: TRAZODONE HYDROCHLORIDE
  5. KLONOPIN [Concomitant]
     Active Substance: CLONAZEPAM
  6. CYMBALTA [Concomitant]
     Active Substance: DULOXETINE HYDROCHLORIDE
  7. SPRAVATO [Suspect]
     Active Substance: ESKETAMINE
     Indication: DEPRESSION
     Dosage: 28 MG, 4 TOTAL DOSES
     Dates: start: 20210205, end: 20210216
  8. SPRAVATO [Suspect]
     Active Substance: ESKETAMINE
     Dosage: 56MG, 5 TOTAL DOSES
     Dates: start: 20210326, end: 20210413

REACTIONS (7)
  - Depression [Unknown]
  - Adverse event [Unknown]
  - Anxiety [Unknown]
  - Dizziness [Unknown]
  - Suicidal ideation [Unknown]
  - Fatigue [Unknown]
  - Feeling abnormal [Unknown]
